FAERS Safety Report 22393944 (Version 1)
Quarter: 2023Q2

REPORT INFORMATION
  Report Type: Spontaneous
  Country: US (occurrence: US)
  Receive Date: 20230601
  Receipt Date: 20230601
  Transmission Date: 20230722
  Serious: Yes (Other)
  Sender: FDA-Public Use
  Company Number: US-PFIZER INC-PV202300095191

PATIENT
  Age: 55 Year
  Sex: Female

DRUGS (1)
  1. IBRANCE [Suspect]
     Active Substance: PALBOCICLIB
     Indication: Breast cancer female
     Dosage: 125 MG
     Dates: start: 202207

REACTIONS (7)
  - Cellulitis [Unknown]
  - Pneumonia [Unknown]
  - Cough [Recovering/Resolving]
  - Neoplasm progression [Unknown]
  - Neoplasm recurrence [Unknown]
  - Pleural effusion [Unknown]
  - Cardiomegaly [Unknown]
